FAERS Safety Report 12390287 (Version 2)
Quarter: 2016Q2

REPORT INFORMATION
  Report Type: Spontaneous
  Country: FR (occurrence: FR)
  Receive Date: 20160520
  Receipt Date: 20160524
  Transmission Date: 20160815
  Serious: Yes (Hospitalization, Other)
  Sender: FDA-Public Use
  Company Number: FR-PFIZER INC-2016140974

PATIENT
  Age: 50 Year
  Sex: Male

DRUGS (23)
  1. ARACYTINE [Suspect]
     Active Substance: CYTARABINE
     Dosage: 2625 MG, 2X/DAY
     Route: 042
     Dates: start: 20160114, end: 20160115
  2. METHOTREXATE (METHOTREXATE SODIUM) [Suspect]
     Active Substance: METHOTREXATE SODIUM
     Indication: ACUTE LYMPHOCYTIC LEUKAEMIA
     Dosage: 1750 MG, SINGLE
     Route: 042
     Dates: start: 20160113, end: 20160113
  3. BACTRIM [Suspect]
     Active Substance: SULFAMETHOXAZOLE\TRIMETHOPRIM
     Indication: INFECTION PROPHYLAXIS
     Dosage: 1 DF, 3X/WEEK (MONDAY, WEDNESDAY, FRIDAY)
     Route: 048
     Dates: start: 20160116, end: 20160121
  4. METHOTREXATE BIODIM [Suspect]
     Active Substance: METHOTREXATE
     Dosage: UNK
     Route: 037
     Dates: start: 20151211, end: 20151211
  5. DEXAMETHASONE. [Suspect]
     Active Substance: DEXAMETHASONE
     Indication: ACUTE LYMPHOCYTIC LEUKAEMIA
     Dosage: 40 MG, DAILY CYCLIC ON D1-D2, D8-D9, D15-D16 AND D22-D23 (8 DFS IN TOTAL)
     Route: 048
     Dates: start: 20151209, end: 20151231
  6. LERCANIDIPINE HYDROCHLORIDE [Concomitant]
     Active Substance: LERCANIDIPINE HYDROCHLORIDE
     Dosage: UNK
  7. ARACYTINE [Suspect]
     Active Substance: CYTARABINE
     Indication: ACUTE LYMPHOCYTIC LEUKAEMIA
     Dosage: 1 DF, UNK
     Route: 037
     Dates: start: 20151211, end: 20151211
  8. VINCRISTINE SULFATE. [Suspect]
     Active Substance: VINCRISTINE SULFATE
     Indication: ACUTE LYMPHOCYTIC LEUKAEMIA
     Dosage: 2 MG DAILY CYCLIC (ON D1, D8, D15 AND D22)
     Route: 042
     Dates: start: 20151209, end: 20151209
  9. METHOTREXATE BIODIM [Suspect]
     Active Substance: METHOTREXATE
     Dosage: UNK
     Route: 037
     Dates: start: 20151216, end: 20151216
  10. ARACYTINE [Suspect]
     Active Substance: CYTARABINE
     Dosage: 1 DF, UNK
     Route: 037
     Dates: start: 20151223, end: 20151223
  11. VINCRISTINE SULFATE. [Suspect]
     Active Substance: VINCRISTINE SULFATE
     Dosage: 2 MG DAILY CYCLIC (ON D1, D8, D15 AND D22)
     Route: 042
     Dates: start: 20151230, end: 20151230
  12. METHOTREXATE BIODIM [Suspect]
     Active Substance: METHOTREXATE
     Indication: ACUTE LYMPHOCYTIC LEUKAEMIA
     Dosage: UNK
     Route: 037
     Dates: start: 20151209, end: 20151209
  13. VINCRISTINE SULFATE. [Suspect]
     Active Substance: VINCRISTINE SULFATE
     Dosage: 2 MG DAILY CYCLIC (ON D1, D8, D15 AND D22)
     Route: 042
     Dates: start: 20151216, end: 20151216
  14. ZELITREX [Suspect]
     Active Substance: VALACYCLOVIR HYDROCHLORIDE
     Indication: INFECTION PROPHYLAXIS
     Dosage: 500 MG, 1X/DAY (500 MG FILM COATED TABLET)
     Route: 048
     Dates: start: 20151231, end: 20160123
  15. METHOTREXATE BIODIM [Suspect]
     Active Substance: METHOTREXATE
     Dosage: UNK
     Route: 037
     Dates: start: 20151223, end: 20151223
  16. TASIGNA [Suspect]
     Active Substance: NILOTINIB
     Indication: ACUTE LYMPHOCYTIC LEUKAEMIA
     Dosage: 400 MG EVERY 12 HOURS (200 MG CAPSULES)
     Route: 048
     Dates: start: 20151209, end: 20160124
  17. PHOSPHONEUROS [Concomitant]
     Active Substance: CALCIUM PHOSPHATE, DIBASIC, ANHYDROUS\MAGNESIUM GLYCEROPHOSPHATE\PHOSPHORIC ACID\SODIUM PHOSPHATE, DIBASIC
     Dosage: UNK
  18. DEPO-MEDROL [Concomitant]
     Active Substance: METHYLPREDNISOLONE ACETATE
     Dosage: UNK, CYCLIC (ON DAY 1, 8, 15)
     Route: 037
  19. VINCRISTINE SULFATE. [Suspect]
     Active Substance: VINCRISTINE SULFATE
     Dosage: 2 MG DAILY CYCLIC (ON D1, D8, D15 AND D22)
     Route: 042
     Dates: start: 20151223, end: 20151223
  20. ARACYTINE [Suspect]
     Active Substance: CYTARABINE
     Dosage: 1 DF, UNK
     Route: 037
     Dates: start: 20151216, end: 20151216
  21. EMEND [Suspect]
     Active Substance: APREPITANT
     Indication: PROPHYLAXIS OF NAUSEA AND VOMITING
     Dosage: 80 MG, 1X/DAY (80 MG CAPSULE)
     Route: 048
     Dates: start: 20160113, end: 20160115
  22. IMOVANE [Concomitant]
     Active Substance: ZOPICLONE
     Dosage: UNK
  23. PRINCI B1 + B6 [Concomitant]
     Dosage: UNK

REACTIONS (3)
  - Febrile bone marrow aplasia [Unknown]
  - Dermatitis exfoliative [Recovered/Resolved]
  - Pericarditis [Recovered/Resolved]

NARRATIVE: CASE EVENT DATE: 20160121
